FAERS Safety Report 7610741-0 (Version None)
Quarter: 2011Q3

REPORT INFORMATION
  Report Type: 
  Country: None (occurrence: None)
  Receive Date: 20110715
  Receipt Date: 20110707
  Transmission Date: 20111222
  Serious: Yes (Hospitalization)
  Sender: FDA-Public Use
  Company Number: US-ELI_LILLY_AND_COMPANY-US201107002288

PATIENT
  Age: 47 Year
  Sex: Male
  Weight: 112.47 kg

DRUGS (3)
  1. BYETTA [Suspect]
     Indication: TYPE 2 DIABETES MELLITUS
     Dosage: UNK
     Route: 058
     Dates: end: 20101218
  2. GLIPIZIDE [Concomitant]
  3. JANUVIA [Concomitant]

REACTIONS (6)
  - CHEST PAIN [None]
  - ILL-DEFINED DISORDER [None]
  - HYPERTENSION [None]
  - OBESITY [None]
  - PANCREATITIS [None]
  - PULMONARY EMBOLISM [None]
